FAERS Safety Report 4396011-5 (Version None)
Quarter: 2004Q3

REPORT INFORMATION
  Report Type: 
  Country: None (occurrence: None)
  Receive Date: 20040708
  Receipt Date: 20040624
  Transmission Date: 20050211
  Serious: Yes (Hospitalization)
  Sender: FDA-Public Use
  Company Number: 2004UW13100

PATIENT
  Age: 68 Year
  Sex: Male
  Weight: 110 kg

DRUGS (2)
  1. TENORMIN [Suspect]
     Indication: CORONARY ARTERY DISEASE
     Dosage: 50 MG BID PO
     Route: 048
     Dates: start: 20031224, end: 20040308
  2. LOTREL [Suspect]
     Indication: HYPERTENSION
     Dates: start: 20031229

REACTIONS (5)
  - ASTHENIA [None]
  - DISEASE PROGRESSION [None]
  - HYPOTENSION [None]
  - SICK SINUS SYNDROME [None]
  - SINUS BRADYCARDIA [None]
